FAERS Safety Report 7601603-3 (Version None)
Quarter: 2011Q3

REPORT INFORMATION
  Report Type: 
  Country: None (occurrence: None)
  Receive Date: 20110711
  Receipt Date: 20110701
  Transmission Date: 20111222
  Serious: Yes (Hospitalization, Other)
  Sender: FDA-Public Use
  Company Number: PHHY2011US25105

PATIENT
  Sex: Female

DRUGS (13)
  1. GILENYA [Suspect]
     Indication: RELAPSING-REMITTING MULTIPLE SCLEROSIS
     Dosage: 0.5 MG, QD
     Route: 048
     Dates: start: 20110106, end: 20110621
  2. PRAMIPEXOLE DIHYDROCHLORIDE [Concomitant]
     Dosage: UNK UKN, UNK
  3. PROVIGIL [Concomitant]
     Dosage: UNK UKN, UNK
  4. METOPROLOL TARTRATE [Concomitant]
     Dosage: UNK UKN, UNK
  5. LYRICA [Concomitant]
     Dosage: UNK UKN, UNK
  6. BOTOX [Concomitant]
     Dosage: UNK UKN, UNK
  7. ESTRACE [Concomitant]
     Dosage: UNK UKN, UNK
  8. NUVIGIL [Concomitant]
     Dosage: UNK UKN, UNK
  9. LOSARTAN POTASSIUM [Concomitant]
     Dosage: UNK UKN, UNK
  10. NEXIUM [Concomitant]
     Dosage: UNK UKN, UNK
  11. AMITIZA [Concomitant]
     Dosage: UNK UKN, UNK
  12. BONIVA [Concomitant]
     Dosage: UNK UKN, UNK
  13. VITAMIN B-12 [Concomitant]
     Dosage: UNK UKN, UNK

REACTIONS (8)
  - COUGH [None]
  - NUCLEAR MAGNETIC RESONANCE IMAGING BRAIN ABNORMAL [None]
  - BRONCHITIS [None]
  - SINUSITIS [None]
  - UPPER RESPIRATORY TRACT INFECTION [None]
  - URINARY TRACT INFECTION [None]
  - HEADACHE [None]
  - WHITE BLOOD CELL DISORDER [None]
